FAERS Safety Report 15464847 (Version 1)
Quarter: 2018Q4

REPORT INFORMATION
  Report Type: Spontaneous
  Country: US (occurrence: US)
  Receive Date: 20181004
  Receipt Date: 20181004
  Transmission Date: 20190204
  Serious: No
  Sender: FDA-Public Use
  Company Number: US-TARO-2017TAR00920

PATIENT
  Age: 85 Year
  Sex: Female
  Weight: 63.49 kg

DRUGS (4)
  1. HYDROCORTISONE VALERATE CREAM USP 0.2% [Suspect]
     Active Substance: HYDROCORTISONE VALERATE
     Indication: PAPULE
  2. HYDROCORTISONE VALERATE CREAM USP 0.2% [Suspect]
     Active Substance: HYDROCORTISONE VALERATE
     Indication: SKIN DEPIGMENTATION
     Dosage: A COUPLE OF PEA-SIZED AMOUNTS
     Route: 061
     Dates: start: 20170729, end: 20170730
  3. UNKNOWN HEART MEDICATION [Concomitant]
     Active Substance: UNSPECIFIED INGREDIENT
  4. UNKNOWN BLOOD PRESSURE MEDICATIONS [Concomitant]

REACTIONS (3)
  - Pruritus [Recovered/Resolved]
  - Drug ineffective for unapproved indication [Recovered/Resolved]
  - Rash papular [Recovered/Resolved]

NARRATIVE: CASE EVENT DATE: 20170729
